FAERS Safety Report 7908444-8 (Version None)
Quarter: 2011Q4

REPORT INFORMATION
  Report Type: 
  Country: None (occurrence: None)
  Receive Date: 20111111
  Receipt Date: 20111102
  Transmission Date: 20120403
  Serious: Yes (Other)
  Sender: FDA-Public Use
  Company Number: US-JNJFOC-20111101086

PATIENT
  Sex: Female
  Weight: 107.96 kg

DRUGS (4)
  1. REMICADE [Suspect]
     Route: 042
     Dates: start: 20110501, end: 20110101
  2. REMICADE [Suspect]
     Indication: RHEUMATOID ARTHRITIS
     Route: 042
     Dates: start: 20110501, end: 20110101
  3. REMICADE [Suspect]
     Route: 042
     Dates: start: 20111001, end: 20111001
  4. REMICADE [Suspect]
     Indication: PSORIASIS
     Route: 042
     Dates: start: 20111001, end: 20111001

REACTIONS (8)
  - WEIGHT INCREASED [None]
  - APHONIA [None]
  - COUGH [None]
  - RESPIRATORY TRACT INFECTION [None]
  - MALAISE [None]
  - PSORIASIS [None]
  - DYSGEUSIA [None]
  - VOMITING [None]
